FAERS Safety Report 21990366 (Version 1)
Quarter: 2023Q1

REPORT INFORMATION
  Report Type: Spontaneous
  Country: None (occurrence: FR)
  Receive Date: 20230214
  Receipt Date: 20230214
  Transmission Date: 20230418
  Serious: Yes (Other)
  Sender: FDA-Public Use
  Company Number: FR-Ascend Therapeutics US, LLC-2137932

PATIENT
  Age: 44 Year
  Sex: Male

DRUGS (5)
  1. ESTROGEL [Suspect]
     Active Substance: ESTRADIOL
     Indication: Hormone replacement therapy
     Route: 062
  2. ESTROGEL [Suspect]
     Active Substance: ESTRADIOL
  3. ESTRADIOL [Suspect]
     Active Substance: ESTRADIOL
     Route: 062
  4. PRAZEPAM(PRAZEPAM) [Concomitant]
     Route: 065
  5. ESTRADIOL [Suspect]
     Active Substance: ESTRADIOL
     Route: 062

REACTIONS (6)
  - Retinal vein occlusion [Recovered/Resolved]
  - Retinopathy hypertensive [Recovered/Resolved]
  - Blindness [Recovered/Resolved]
  - Metamorphopsia [Unknown]
  - Off label use [None]
  - Intentional product use issue [None]
